FAERS Safety Report 5375685-6 (Version None)
Quarter: 2007Q2

REPORT INFORMATION
  Report Type: 
  Country: None (occurrence: None)
  Receive Date: 20070629
  Receipt Date: 20070619
  Transmission Date: 20071010
  Serious: Yes (Other)
  Sender: FDA-Public Use
  Company Number: GB-PFIZER INC-2007052357

PATIENT
  Age: 35 Year
  Sex: Male

DRUGS (1)
  1. SULFASALAZINE [Suspect]
     Indication: ARTHRITIS REACTIVE

REACTIONS (4)
  - HEPATOTOXICITY [None]
  - LYMPHADENOPATHY [None]
  - NEPHRITIS INTERSTITIAL [None]
  - RASH [None]
